FAERS Safety Report 23851237 (Version 1)
Quarter: 2024Q2

REPORT INFORMATION
  Report Type: Spontaneous
  Country: HR (occurrence: HR)
  Receive Date: 20240514
  Receipt Date: 20240514
  Transmission Date: 20240715
  Serious: Yes (Other)
  Sender: FDA-Public Use
  Company Number: HR-009507513-2303HRV004978

PATIENT
  Age: 38 Year
  Sex: Male

DRUGS (1)
  1. KEYTRUDA [Suspect]
     Active Substance: PEMBROLIZUMAB
     Indication: Malignant melanoma
     Dosage: 200 MILLIGRAM, Q3W
     Dates: start: 202210

REACTIONS (18)
  - Skin graft failure [Unknown]
  - Melanoma recurrent [Unknown]
  - Hypothyroidism [Unknown]
  - Primary adrenal insufficiency [Recovered/Resolved]
  - Fibrous histiocytoma [Unknown]
  - Nasal obstruction [Unknown]
  - Respiratory rate decreased [Unknown]
  - Gait disturbance [Unknown]
  - Hair colour changes [Unknown]
  - Pyrexia [Unknown]
  - Ejection fraction abnormal [Unknown]
  - Blood urea abnormal [Unknown]
  - Blood creatinine abnormal [Unknown]
  - Melanocytic naevus [Unknown]
  - Juvenile melanoma benign [Unknown]
  - Dysplastic naevus [Unknown]
  - Lentigo [Unknown]
  - Melanocytic naevus [Unknown]

NARRATIVE: CASE EVENT DATE: 20230101
